FAERS Safety Report 23964256 (Version 2)
Quarter: 2024Q2

REPORT INFORMATION
  Report Type: Report from Study
  Country: US (occurrence: US)
  Receive Date: 20240611
  Receipt Date: 20240618
  Transmission Date: 20240717
  Serious: Yes (Other)
  Sender: FDA-Public Use
  Company Number: US-ABBVIE-5790422

PATIENT
  Sex: Female

DRUGS (3)
  1. HUMIRA [Suspect]
     Active Substance: ADALIMUMAB
     Indication: Rheumatoid arthritis
     Dosage: CITRATE FREE
     Route: 058
     Dates: start: 20240213, end: 20240305
  2. HUMIRA [Suspect]
     Active Substance: ADALIMUMAB
     Dosage: CITRATE FREE
     Route: 058
     Dates: start: 20240212, end: 20240213
  3. METHOTREXATE [Concomitant]
     Active Substance: METHOTREXATE
     Indication: Product used for unknown indication
     Dates: start: 202403

REACTIONS (14)
  - Suicidal ideation [Unknown]
  - Injection site hypersensitivity [Recovered/Resolved]
  - Injection site hypersensitivity [Recovered/Resolved]
  - Inflammation [Unknown]
  - Throat irritation [Unknown]
  - Injection site urticaria [Unknown]
  - Drug ineffective [Unknown]
  - Throat tightness [Unknown]
  - Mental disorder [Unknown]
  - Somnolence [Unknown]
  - Injection site erythema [Not Recovered/Not Resolved]
  - Injection site pruritus [Not Recovered/Not Resolved]
  - Injection site bruising [Not Recovered/Not Resolved]
  - Depressed mood [Unknown]

NARRATIVE: CASE EVENT DATE: 20240101
